FAERS Safety Report 6668426-3 (Version None)
Quarter: 2010Q2

REPORT INFORMATION
  Report Type: 
  Country: None (occurrence: None)
  Receive Date: 20100406
  Receipt Date: 20100325
  Transmission Date: 20101027
  Serious: Yes (Disabling)
  Sender: FDA-Public Use
  Company Number: PHHY2010ZA15431

PATIENT
  Age: 38 Year
  Sex: Female
  Weight: 86.7 kg

DRUGS (1)
  1. ICL670A ICL+ [Suspect]

REACTIONS (3)
  - CERVICAL DYSPLASIA [None]
  - DYSFUNCTIONAL UTERINE BLEEDING [None]
  - LARYNGITIS [None]
